FAERS Safety Report 10231495 (Version 1)
Quarter: 2014Q2

REPORT INFORMATION
  Report Type: Spontaneous
  Country: JP (occurrence: JP)
  Receive Date: 20140611
  Receipt Date: 20140611
  Transmission Date: 20141212
  Serious: Yes (Other)
  Sender: FDA-Public Use
  Company Number: JP-BRISTOL-MYERS SQUIBB COMPANY-20951109

PATIENT
  Age: 63 Year
  Sex: Male

DRUGS (1)
  1. ERBITUX SOLN FOR INF 5MG/ML [Suspect]
     Indication: OROPHARYNGEAL CANCER
     Route: 041

REACTIONS (2)
  - Gastrointestinal necrosis [Unknown]
  - Gastrointestinal haemorrhage [Unknown]
